FAERS Safety Report 8339297-4 (Version None)
Quarter: 2012Q2

REPORT INFORMATION
  Report Type: 
  Country: None (occurrence: None)
  Receive Date: 20120502
  Receipt Date: 20120426
  Transmission Date: 20120825
  Serious: Yes (Hospitalization)
  Sender: FDA-Public Use
  Company Number: 2012-001640

PATIENT
  Age: 85 Year
  Sex: Female

DRUGS (7)
  1. CLOPIDOGREL [Suspect]
     Dosage: 75 MG DAILY, ORAL
     Route: 048
     Dates: start: 20110513
  2. CALCEOS (CALCIUM CARBONATE, COLECALCIFEROL) [Concomitant]
  3. ATORVASTATIN [Suspect]
  4. PANTOPRAZOLE [Concomitant]
  5. RAMPRIL (RAMPRIL) [Concomitant]
  6. ATENOLOL [Concomitant]
  7. ACTONEL [Suspect]
     Dosage: 35 MG ONCE WEEKLY, ORAL
     Route: 048

REACTIONS (3)
  - VOMITING [None]
  - FALL [None]
  - OESOPHAGITIS [None]
